FAERS Safety Report 21711315 (Version 1)
Quarter: 2022Q4

REPORT INFORMATION
  Report Type: Spontaneous
  Country: FR (occurrence: FR)
  Receive Date: 20221212
  Receipt Date: 20221212
  Transmission Date: 20230113
  Serious: Yes (Other)
  Sender: FDA-Public Use
  Company Number: None

PATIENT
  Age: 3 Year
  Sex: Male
  Weight: 15 kg

DRUGS (1)
  1. TEGRETOL [Suspect]
     Active Substance: CARBAMAZEPINE
     Indication: Partial seizures
     Dosage: UNK (PRESCRIBED DOSAGE, INCREMENTAL INCREASE (EXACT TIMING NOT SPECIFIED): 60MG THEN 90MG THEN 120MG
     Route: 048
     Dates: start: 20221115, end: 20221126

REACTIONS (4)
  - Incorrect dosage administered [Recovered/Resolved]
  - Hepatic cytolysis [Unknown]
  - Pyrexia [Recovering/Resolving]
  - Rash macular [Not Recovered/Not Resolved]

NARRATIVE: CASE EVENT DATE: 20221115
